FAERS Safety Report 9290995 (Version 1)
Quarter: 2013Q2

REPORT INFORMATION
  Report Type: Spontaneous
  Country: ES (occurrence: ES)
  Receive Date: 20130515
  Receipt Date: 20130515
  Transmission Date: 20140414
  Serious: Yes (Hospitalization)
  Sender: FDA-Public Use
  Company Number: ES-009507513-1305ESP008337

PATIENT
  Age: 57 Year
  Sex: Male

DRUGS (10)
  1. ATORVASTATIN [Concomitant]
     Indication: HYPERCHOLESTEROLAEMIA
     Dosage: 40 MG, QD
     Route: 048
  2. EFFICIB [Suspect]
     Indication: DIABETES MELLITUS
     Dosage: ONCE DAILY, (1 DOSAGE FORM, 1 IN 1D)
     Route: 048
     Dates: start: 2012, end: 20121220
  3. LANTUS [Concomitant]
     Indication: DIABETES MELLITUS
     Dosage: 60 IU, DAILY
     Route: 058
  4. NOVO-NORM [Concomitant]
     Indication: DIABETES MELLITUS
     Dosage: 2 MG, TID
     Route: 048
  5. OMEPRAZOLE [Concomitant]
     Indication: PROPHYLAXIS
     Dosage: 20 MG, DAILY
     Route: 048
  6. ADIRO [Concomitant]
     Indication: PROPHYLAXIS
     Dosage: 100 MG, QD
     Route: 048
  7. EFFIENT [Concomitant]
     Indication: MYOCARDIAL ISCHAEMIA
     Dosage: 10 MG, QD
     Route: 048
  8. CARDURAN NEO [Concomitant]
     Indication: HYPERTENSION
     Dosage: 4 MG, QD
     Route: 048
  9. EMCONCOR [Concomitant]
     Indication: MYOCARDIAL ISCHAEMIA
     Dosage: 5 MG, 2 IN 1 D
     Route: 048
  10. CODIOVAN FORTE [Concomitant]
     Indication: HYPERTENSION
     Dosage: 1 DOSAGE FORMA, 1 IN 1 D
     Route: 048

REACTIONS (1)
  - Gout [Recovered/Resolved]
